FAERS Safety Report 18035599 (Version 1)
Quarter: 2020Q3

REPORT INFORMATION
  Report Type: Spontaneous
  Country: CN (occurrence: CN)
  Receive Date: 20200717
  Receipt Date: 20200717
  Transmission Date: 20201103
  Serious: Yes (Death, Other)
  Sender: FDA-Public Use
  Company Number: CN-ROCHE-2641639

PATIENT

DRUGS (10)
  1. AVASTIN [Suspect]
     Active Substance: BEVACIZUMAB
     Indication: ADENOCARCINOMA OF COLON
     Route: 041
     Dates: start: 20141011
  2. OXALIPLATIN. [Concomitant]
     Active Substance: OXALIPLATIN
     Indication: ADENOCARCINOMA OF COLON
     Route: 041
     Dates: start: 20140619
  3. AVASTIN [Suspect]
     Active Substance: BEVACIZUMAB
     Route: 041
     Dates: start: 20171113, end: 20180807
  4. OXALIPLATIN. [Concomitant]
     Active Substance: OXALIPLATIN
     Route: 041
     Dates: start: 20170325
  5. AVASTIN [Suspect]
     Active Substance: BEVACIZUMAB
     Route: 041
     Dates: start: 20170325
  6. XELODA [Suspect]
     Active Substance: CAPECITABINE
     Dosage: ONCE 2 TABLETS, ONCE 3 TABLETS;  DF= TABLET
     Route: 048
     Dates: start: 20170507
  7. 5?FLUOROURACIL [Concomitant]
     Active Substance: FLUOROURACIL
     Indication: ADENOCARCINOMA OF COLON
     Dosage: 3.9 G CONTINUED INJECTION 46 HOURS
     Dates: start: 20140619
  8. XELODA [Suspect]
     Active Substance: CAPECITABINE
     Indication: ADENOCARCINOMA OF COLON
     Dosage: DF= TABLET
     Route: 048
     Dates: start: 20170325
  9. XELODA [Suspect]
     Active Substance: CAPECITABINE
     Route: 048
     Dates: start: 20171113, end: 20180807
  10. CALCIUM FOLINATE [Concomitant]
     Active Substance: LEUCOVORIN CALCIUM
     Indication: ADENOCARCINOMA OF COLON
     Dates: start: 20140619

REACTIONS (6)
  - Ileus [Unknown]
  - Palmar-plantar erythrodysaesthesia syndrome [Unknown]
  - Platelet count decreased [Unknown]
  - Pneumonia [Fatal]
  - Skin fissures [Unknown]
  - Myelosuppression [Unknown]
